FAERS Safety Report 9588497 (Version 1)
Quarter: 2013Q4

REPORT INFORMATION
  Report Type: Spontaneous
  Country: US (occurrence: US)
  Receive Date: 20131003
  Receipt Date: 20131003
  Transmission Date: 20140711
  Serious: No
  Sender: FDA-Public Use
  Company Number: US-AMGEN-USASP2012064432

PATIENT
  Age: 52 Year
  Sex: Male

DRUGS (2)
  1. ENBREL [Suspect]
     Indication: PSORIATIC ARTHROPATHY
     Dosage: UNK UNK, QWK
     Dates: end: 2012
  2. ENBREL [Suspect]
     Indication: PSORIASIS

REACTIONS (3)
  - Therapeutic response decreased [Unknown]
  - Arthralgia [Unknown]
  - Psoriasis [Unknown]
